FAERS Safety Report 7476688 (Version 3)
Quarter: 2013Q3

REPORT INFORMATION
  Report Type: Spontaneous
  Country: US (occurrence: US)
  Receive Date: 20100715
  Receipt Date: 20130705
  Transmission Date: 20140515
  Serious: Yes (Death, Hospitalization, Other)
  Sender: FDA-Public Use
  Company Number: US-JNJFOC-20100404010

PATIENT
  Age: 84 Year
  Sex: Male
  Weight: 75.3 kg

DRUGS (87)
  1. REMICADE [Suspect]
     Indication: RHEUMATOID ARTHRITIS
     Route: 042
     Dates: start: 20091109
  2. REMICADE [Suspect]
     Indication: RHEUMATOID ARTHRITIS
     Route: 042
     Dates: start: 20091222
  3. REMICADE [Suspect]
     Indication: RHEUMATOID ARTHRITIS
     Route: 042
     Dates: start: 20100202
  4. REMICADE [Suspect]
     Indication: RHEUMATOID ARTHRITIS
     Route: 042
     Dates: start: 20090910
  5. REMICADE [Suspect]
     Indication: RHEUMATOID ARTHRITIS
     Route: 042
     Dates: start: 20090804
  6. REMICADE [Suspect]
     Indication: RHEUMATOID ARTHRITIS
     Dosage: FIRST 18 INFUSIONS WERE TAKEN AT ANOTHER OFFICE
     Route: 042
  7. REMICADE [Suspect]
     Indication: RHEUMATOID ARTHRITIS
     Route: 042
     Dates: start: 20100317
  8. REMICADE [Suspect]
     Indication: RHEUMATOID ARTHRITIS
     Route: 042
     Dates: start: 20090623
  9. REMICADE [Suspect]
     Indication: RHEUMATOID ARTHRITIS
     Route: 042
     Dates: start: 20090707
  10. MORPHINE [Concomitant]
  11. HYDROCODONE [Concomitant]
  12. OMEPRAZOLE [Concomitant]
  13. FOLATE [Concomitant]
  14. PREDNISONE [Concomitant]
     Route: 065
     Dates: start: 20000518
  15. PREDNISONE [Concomitant]
     Route: 065
     Dates: start: 20090623
  16. PREDNISONE [Concomitant]
     Route: 065
     Dates: start: 20090804
  17. PREDNISONE [Concomitant]
     Route: 065
     Dates: start: 20090910
  18. PREDNISONE [Concomitant]
     Route: 065
     Dates: start: 20091109
  19. PREDNISONE [Concomitant]
     Route: 065
     Dates: start: 20090609
  20. PREDNISONE [Concomitant]
     Route: 065
     Dates: start: 20100202
  21. PREDNISONE [Concomitant]
     Route: 065
     Dates: start: 20091222
  22. PREDNISONE [Concomitant]
     Route: 065
     Dates: start: 20090507
  23. METHOTREXATE [Concomitant]
     Route: 065
     Dates: start: 20000518
  24. METHOTREXATE [Concomitant]
     Route: 065
     Dates: start: 20090609
  25. METHOTREXATE [Concomitant]
     Route: 065
     Dates: start: 20090623
  26. METHOTREXATE [Concomitant]
     Route: 065
     Dates: start: 20090507
  27. METHOTREXATE [Concomitant]
     Route: 065
     Dates: start: 20090804
  28. METHOTREXATE [Concomitant]
     Route: 065
     Dates: start: 20090910
  29. METHOTREXATE [Concomitant]
     Route: 065
     Dates: start: 20091109
  30. METHOTREXATE [Concomitant]
     Route: 065
     Dates: start: 20091222
  31. METHOTREXATE [Concomitant]
     Route: 065
     Dates: start: 20100202
  32. PANTOPRAZOLE [Concomitant]
     Route: 065
     Dates: start: 20090507
  33. PANTOPRAZOLE [Concomitant]
     Route: 065
     Dates: start: 20000518
  34. PANTOPRAZOLE [Concomitant]
     Route: 065
     Dates: start: 20090609
  35. PANTOPRAZOLE [Concomitant]
     Route: 065
     Dates: start: 20090623
  36. PANTOPRAZOLE [Concomitant]
     Route: 065
     Dates: start: 20100202
  37. PANTOPRAZOLE [Concomitant]
     Route: 065
     Dates: start: 20090804
  38. PANTOPRAZOLE [Concomitant]
     Route: 065
     Dates: start: 20090910
  39. PANTOPRAZOLE [Concomitant]
     Route: 065
     Dates: start: 20091109
  40. PANTOPRAZOLE [Concomitant]
     Route: 065
     Dates: start: 20091222
  41. LEXAPRO [Concomitant]
     Route: 065
     Dates: start: 20100202
  42. LEXAPRO [Concomitant]
     Route: 065
     Dates: start: 20091222
  43. LEXAPRO [Concomitant]
     Route: 065
     Dates: start: 20091109
  44. LEXAPRO [Concomitant]
     Route: 065
     Dates: start: 20090910
  45. LEXAPRO [Concomitant]
     Route: 065
     Dates: start: 20090804
  46. LEXAPRO [Concomitant]
     Route: 065
     Dates: start: 20090507
  47. LEXAPRO [Concomitant]
     Route: 065
     Dates: start: 20090623
  48. LEXAPRO [Concomitant]
     Route: 065
     Dates: start: 20090609
  49. LEXAPRO [Concomitant]
     Route: 065
     Dates: start: 20000518
  50. FLOMAX [Concomitant]
     Route: 065
     Dates: start: 20090804
  51. FLOMAX [Concomitant]
     Route: 065
     Dates: start: 20090507
  52. FLOMAX [Concomitant]
     Route: 065
     Dates: start: 20090623
  53. FLOMAX [Concomitant]
     Route: 065
     Dates: start: 20100202
  54. FLOMAX [Concomitant]
     Route: 065
     Dates: start: 20091222
  55. FLOMAX [Concomitant]
     Route: 065
     Dates: start: 20091109
  56. FLOMAX [Concomitant]
     Route: 065
     Dates: start: 20090609
  57. FLOMAX [Concomitant]
     Route: 065
     Dates: start: 20000518
  58. FLOMAX [Concomitant]
     Route: 065
     Dates: start: 20090910
  59. FOLIC ACID [Concomitant]
     Route: 065
     Dates: start: 20090609
  60. FOLIC ACID [Concomitant]
     Route: 065
     Dates: start: 20090804
  61. FOLIC ACID [Concomitant]
     Route: 065
     Dates: start: 20090507
  62. FOLIC ACID [Concomitant]
     Route: 065
     Dates: start: 20090623
  63. FOLIC ACID [Concomitant]
     Route: 065
     Dates: start: 20090910
  64. FOLIC ACID [Concomitant]
     Route: 065
     Dates: start: 20000518
  65. FOLIC ACID [Concomitant]
     Route: 065
     Dates: start: 20091109
  66. FOLIC ACID [Concomitant]
     Route: 065
     Dates: start: 20091222
  67. FOLIC ACID [Concomitant]
     Route: 065
     Dates: start: 20100202
  68. LORTAB [Concomitant]
     Route: 065
     Dates: start: 20090623
  69. LORTAB [Concomitant]
     Route: 065
     Dates: start: 20090609
  70. LORTAB [Concomitant]
     Route: 065
     Dates: start: 20090507
  71. LORTAB [Concomitant]
     Route: 065
     Dates: start: 20090804
  72. LORTAB [Concomitant]
     Route: 065
     Dates: start: 20090910
  73. LORTAB [Concomitant]
     Route: 065
     Dates: start: 20091109
  74. LORTAB [Concomitant]
     Dosage: REPORTED ASONCE A DAY AND ALSO AS TWICE A DAY
     Route: 065
     Dates: start: 20000518
  75. LORTAB [Concomitant]
     Route: 065
     Dates: start: 20091222
  76. LORTAB [Concomitant]
     Route: 065
     Dates: start: 20100202
  77. ACTONEL [Concomitant]
     Route: 065
     Dates: start: 20100202
  78. ACTONEL [Concomitant]
     Route: 065
     Dates: start: 20091109
  79. ACTONEL [Concomitant]
     Route: 065
     Dates: start: 20090910
  80. ACTONEL [Concomitant]
     Route: 065
     Dates: start: 20090804
  81. ACTONEL [Concomitant]
     Route: 065
     Dates: start: 20090507
  82. ACTONEL [Concomitant]
     Route: 065
     Dates: start: 20091222
  83. DURAGESIC [Concomitant]
     Route: 062
     Dates: start: 20090609
  84. DURAGESIC [Concomitant]
     Route: 062
     Dates: start: 20090804
  85. DURAGESIC [Concomitant]
     Route: 062
     Dates: start: 20090507
  86. DURAGESIC [Concomitant]
     Route: 062
     Dates: start: 20000518
  87. DURAGESIC [Concomitant]
     Route: 062
     Dates: start: 20090623

REACTIONS (6)
  - Sepsis [Fatal]
  - Pneumonia [Fatal]
  - Dehydration [Not Recovered/Not Resolved]
  - Respiratory failure [Fatal]
  - Helicobacter test positive [Unknown]
  - Rheumatoid arthritis [Unknown]
